FAERS Safety Report 5204128-8 (Version None)
Quarter: 2007Q1

REPORT INFORMATION
  Report Type: 
  Country: None (occurrence: None)
  Receive Date: 20070110
  Receipt Date: 20051206
  Transmission Date: 20070707
  Serious: No
  Sender: FDA-Public Use
  Company Number: US-BRISTOL-MYERS SQUIBB COMPANY-13205901

PATIENT
  Age: 10 Year
  Sex: Male
  Weight: 44 kg

DRUGS (3)
  1. ABILIFY [Suspect]
     Indication: OPPOSITIONAL DEFIANT DISORDER
     Route: 048
  2. ABILIFY [Suspect]
     Indication: ATTENTION DEFICIT/HYPERACTIVITY DISORDER
     Route: 048
  3. MULTI-VITAMIN [Concomitant]

REACTIONS (2)
  - HUNGER [None]
  - WEIGHT INCREASED [None]
